FAERS Safety Report 11340736 (Version 1)
Quarter: 2015Q3

REPORT INFORMATION
  Report Type: Spontaneous
  Country: US (occurrence: None)
  Receive Date: 20150803
  Receipt Date: 20150803
  Transmission Date: 20151125
  Serious: Yes (Disabling)
  Sender: FDA-Public Use
  Company Number: None

PATIENT
  Sex: Male
  Weight: 90.72 kg

DRUGS (2)
  1. CITALOPRAM [Suspect]
     Active Substance: CITALOPRAM HYDROBROMIDE
     Indication: DEPRESSION
     Dosage: 1 PILL
     Route: 048
  2. CITALOPRAM [Suspect]
     Active Substance: CITALOPRAM HYDROBROMIDE
     Indication: ANXIETY
     Dosage: 1 PILL
     Route: 048

REACTIONS (17)
  - Depression [None]
  - Hyperacusis [None]
  - Drug withdrawal syndrome [None]
  - Crying [None]
  - Vertigo [None]
  - Economic problem [None]
  - Paraesthesia [None]
  - Neck pain [None]
  - Nausea [None]
  - Pain of skin [None]
  - Feeling abnormal [None]
  - Photophobia [None]
  - Quality of life decreased [None]
  - Migraine [None]
  - Mood swings [None]
  - Pain [None]
  - Anxiety [None]
